FAERS Safety Report 5684881-X (Version None)
Quarter: 2008Q1

REPORT INFORMATION
  Report Type: 
  Country: None (occurrence: None)
  Receive Date: 20080328
  Receipt Date: 19970213
  Transmission Date: 20080703
  Serious: Yes (Death, Life-Threatening, Hospitalization, Disabling, Other)
  Sender: FDA-Public Use
  Company Number: IT-ROCHE-52591

PATIENT
  Age: 69 Year
  Sex: Female

DRUGS (2)
  1. ROCEPHIN [Suspect]
     Route: 030
     Dates: start: 19951007, end: 19951007
  2. ZESTRIL [Concomitant]
     Indication: HYPERTENSION
     Route: 048
     Dates: end: 19960330

REACTIONS (3)
  - ANAPHYLACTIC SHOCK [None]
  - COMA [None]
  - DEATH [None]
